FAERS Safety Report 11492007 (Version 1)
Quarter: 2015Q3

REPORT INFORMATION
  Report Type: Spontaneous
  Country: US (occurrence: US)
  Receive Date: 20150910
  Receipt Date: 20150910
  Transmission Date: 20151125
  Serious: No
  Sender: FDA-Public Use
  Company Number: US-BAYER-2015-412669

PATIENT
  Age: 34 Year
  Sex: Male
  Weight: 79.37 kg

DRUGS (2)
  1. CLARITIN-D 24 HOUR [Suspect]
     Active Substance: LORATADINE\PSEUDOEPHEDRINE SULFATE
     Dosage: UNK UNK, PRN
     Route: 048
  2. CLARITIN-D 24 HOUR [Suspect]
     Active Substance: LORATADINE\PSEUDOEPHEDRINE SULFATE
     Dosage: 4 DF, QD
     Route: 048
     Dates: start: 20150828, end: 20150828

REACTIONS (4)
  - Fatigue [None]
  - Somnolence [Unknown]
  - Dizziness postural [Unknown]
  - Drug administration error [Unknown]

NARRATIVE: CASE EVENT DATE: 20150828
